FAERS Safety Report 5778393-2 (Version None)
Quarter: 2008Q2

REPORT INFORMATION
  Report Type: 
  Country: None (occurrence: None)
  Receive Date: 20080618
  Receipt Date: 20080618
  Transmission Date: 20081010
  Serious: No
  Sender: FDA-Public Use
  Company Number: None

PATIENT
  Age: 77 Year
  Sex: Male
  Weight: 66 kg

DRUGS (3)
  1. PHENYTOIN [Suspect]
     Indication: CONVULSION
     Dosage: 300 MG AT BEDTIME PO
     Route: 048
     Dates: start: 20080306, end: 20080407
  2. PHENYTOIN [Suspect]
     Indication: DEPRESSION
     Dosage: 300 MG AT BEDTIME PO
     Route: 048
     Dates: start: 20080306, end: 20080407
  3. CITALOPRAM HYDROBROMIDE [Suspect]
     Dosage: 40 MG EVERY DAY PO
     Route: 048
     Dates: start: 20080306, end: 20080405

REACTIONS (9)
  - ANTICONVULSANT DRUG LEVEL ABNORMAL [None]
  - CONFUSIONAL STATE [None]
  - CONVULSION [None]
  - DEPRESSION [None]
  - GAIT DISTURBANCE [None]
  - IRRITABILITY [None]
  - LETHARGY [None]
  - SEDATION [None]
  - SYNCOPE [None]
